FAERS Safety Report 4679708-9 (Version None)
Quarter: 2005Q2

REPORT INFORMATION
  Report Type: 
  Country: None (occurrence: None)
  Receive Date: 20050531
  Receipt Date: 20050517
  Transmission Date: 20051028
  Serious: Yes (Hospitalization, Other)
  Sender: FDA-Public Use
  Company Number: 2005049314

PATIENT
  Age: 70 Year
  Sex: Female
  Weight: 65.7716 kg

DRUGS (9)
  1. DETROL LA [Suspect]
     Indication: BLADDER SPASM
     Dosage: 4 MG (4 MG, 1 IN 1 D), ORAL
     Route: 048
     Dates: start: 20050323, end: 20050323
  2. DETROL LA [Suspect]
     Indication: HYPERTONIC BLADDER
     Dosage: 4 MG (4 MG, 1 IN 1 D), ORAL
     Route: 048
     Dates: start: 20050323, end: 20050323
  3. SERTRALINE HCL [Concomitant]
  4. LEVOTHYROXINE SODIUM [Concomitant]
  5. NABUMETONE [Concomitant]
  6. MEPERIDINE HYDROCHLORIDE [Concomitant]
  7. OXYCODONE HYDROCHLORIDE AND ACETAMINOPHEN [Concomitant]
  8. VITAMINS (VITAMINS) [Concomitant]
  9. ALENDRONATE SODIUM [Concomitant]

REACTIONS (6)
  - ARRHYTHMIA [None]
  - ATRIAL FIBRILLATION [None]
  - BLOOD PRESSURE DECREASED [None]
  - DYSKINESIA [None]
  - HEART RATE INCREASED [None]
  - SENSATION OF PRESSURE [None]
